FAERS Safety Report 8160738-X (Version None)
Quarter: 2012Q1

REPORT INFORMATION
  Report Type: 
  Country: None (occurrence: None)
  Receive Date: 20120223
  Receipt Date: 20120213
  Transmission Date: 20120608
  Serious: Yes (Other)
  Sender: FDA-Public Use
  Company Number: PHHY2011US63471

PATIENT
  Sex: Male

DRUGS (7)
  1. AFINITOR [Suspect]
     Dosage: 2.5 MG, DAILY
     Route: 048
     Dates: start: 20110821
  2. VIMPAT [Concomitant]
  3. AFINITOR [Suspect]
     Dosage: 5 MG, DAILY
     Route: 048
     Dates: end: 20111101
  4. AFINITOR [Suspect]
     Dosage: 2 DF, EVERY 3 DAYS
     Route: 048
  5. DILANTIN [Concomitant]
  6. AFINITOR [Suspect]
     Indication: ASTROCYTOMA, LOW GRADE
     Dosage: 2.5 MG, DAILY
     Route: 048
     Dates: start: 20110706
  7. TENEX [Concomitant]

REACTIONS (11)
  - ORAL HERPES [None]
  - ORAL DISCOMFORT [None]
  - HYPOPHAGIA [None]
  - IRRITABILITY [None]
  - PYREXIA [None]
  - CRYING [None]
  - ANGER [None]
  - DROOLING [None]
  - ABNORMAL BEHAVIOUR [None]
  - DEPRESSED MOOD [None]
  - HEAD BANGING [None]
